FAERS Safety Report 7547448-4 (Version None)
Quarter: 2011Q2

REPORT INFORMATION
  Report Type: 
  Country: None (occurrence: None)
  Receive Date: 20110614
  Receipt Date: 20110603
  Transmission Date: 20111010
  Serious: No
  Sender: FDA-Public Use
  Company Number: CA-ELI_LILLY_AND_COMPANY-CA201104006841

PATIENT
  Age: 91 Year
  Sex: Female
  Weight: 56.689 kg

DRUGS (14)
  1. FORTEO [Suspect]
     Dosage: 20 UG, QD
     Route: 058
     Dates: start: 20110420
  2. PRESERVISION LUTEIN EYE VITA.+MIN.SUP.SOFTG. [Concomitant]
  3. COUMADIN [Concomitant]
     Dosage: 4 MG, 4/W
  4. VITAMIN D [Concomitant]
     Dosage: 1800 IU, UNK
  5. VITAMIN B-12 [Concomitant]
     Dosage: 1000 UG, UNK
  6. PULMICORT [Concomitant]
     Dosage: 0.25 %, UNK
  7. VENTOLIN                                /SCH/ [Concomitant]
     Dosage: UNK
  8. LEVOTHROID [Concomitant]
     Dosage: .75 MG, UNK
  9. FORTEO [Suspect]
     Indication: OSTEOPOROSIS
     Dosage: 20 UG, QD
     Route: 058
     Dates: start: 20041208, end: 20060601
  10. K-DUR [Concomitant]
     Dosage: 20 MEQ, UNK
  11. COUMADIN [Concomitant]
     Dosage: 3 MG, 3/W
  12. FOLIC ACID [Concomitant]
     Dosage: 1 MG, UNK
  13. PRILOSEC [Concomitant]
     Dosage: 20 MG, UNK
  14. LASIX [Concomitant]
     Dosage: 20 MG, UNK

REACTIONS (2)
  - MUSCLE SPASMS [None]
  - BACK PAIN [None]
